FAERS Safety Report 13046250 (Version 3)
Quarter: 2017Q1

REPORT INFORMATION
  Report Type: Spontaneous
  Country: US (occurrence: US)
  Receive Date: 20161220
  Receipt Date: 20170117
  Transmission Date: 20170428
  Serious: No
  Sender: FDA-Public Use
  Company Number: US-GLAXOSMITHKLINE-US2016GSK187879

PATIENT
  Sex: Male

DRUGS (5)
  1. AMOXICILLIN. [Suspect]
     Active Substance: AMOXICILLIN
     Indication: TOOTH DISORDER
  2. FLAGYL [Suspect]
     Active Substance: METRONIDAZOLE\METRONIDAZOLE HYDROCHLORIDE
     Indication: TOOTH DISORDER
  3. FLOLAN DILUENT SOLUTION FOR INJECTION [Suspect]
     Active Substance: GLYCINE\MANNITOL\SODIUM CHLORIDE
     Indication: PULMONARY ARTERIAL HYPERTENSION
     Dosage: UNK
  4. FLOLAN DILUENT SOLUTION FOR INJECTION [Suspect]
     Active Substance: GLYCINE\MANNITOL\SODIUM CHLORIDE
     Dosage: UNK
  5. FLOLAN [Suspect]
     Active Substance: EPOPROSTENOL SODIUM
     Indication: PULMONARY ARTERIAL HYPERTENSION
     Dosage: 80.7 DF, CO
     Dates: start: 20060411

REACTIONS (7)
  - Rash [Unknown]
  - Blister [Unknown]
  - Tooth disorder [Unknown]
  - Arthralgia [Not Recovered/Not Resolved]
  - Diarrhoea [Unknown]
  - Insomnia [Unknown]
  - Headache [Not Recovered/Not Resolved]
